FAERS Safety Report 14923224 (Version 2)
Quarter: 2018Q2

REPORT INFORMATION
  Report Type: Spontaneous
  Country: JP (occurrence: JP)
  Receive Date: 20180522
  Receipt Date: 20180612
  Transmission Date: 20180711
  Serious: Yes (Other)
  Sender: FDA-Public Use
  Company Number: JP-ELI_LILLY_AND_COMPANY-JP201805008508

PATIENT
  Age: 73 Year
  Sex: Female

DRUGS (1)
  1. ERBITUX [Suspect]
     Active Substance: CETUXIMAB
     Indication: GINGIVAL CANCER
     Dosage: UNK, UNKNOWN
     Route: 041

REACTIONS (2)
  - Pneumomediastinum [Unknown]
  - Pneumatosis intestinalis [Recovering/Resolving]
